FAERS Safety Report 19157067 (Version 1)
Quarter: 2021Q2

REPORT INFORMATION
  Report Type: Spontaneous
  Country: US (occurrence: US)
  Receive Date: 20210420
  Receipt Date: 20210420
  Transmission Date: 20210717
  Serious: No
  Sender: FDA-Public Use
  Company Number: US-JNJFOC-20210408839

PATIENT
  Sex: Male

DRUGS (1)
  1. SPRAVATO [Suspect]
     Active Substance: ESKETAMINE
     Indication: PRODUCT USED FOR UNKNOWN INDICATION

REACTIONS (5)
  - Dissociation [Unknown]
  - Crying [Unknown]
  - Anxiety [Unknown]
  - Depressed mood [Unknown]
  - Dissociation [Unknown]

NARRATIVE: CASE EVENT DATE: 20210402
